FAERS Safety Report 7018341-0 (Version None)
Quarter: 2010Q3

REPORT INFORMATION
  Report Type: 
  Country: None (occurrence: None)
  Receive Date: 20100924
  Receipt Date: 20100908
  Transmission Date: 20110219
  Serious: Yes (Death, Hospitalization, Other)
  Sender: FDA-Public Use
  Company Number: 2010003332

PATIENT
  Age: 46 Year
  Sex: Female

DRUGS (20)
  1. TARCEVA [Suspect]
     Indication: BREAST CANCER
     Dosage: 150 MG, QD, ORAL
     Route: 048
     Dates: start: 20100101, end: 20100413
  2. BENDAMUSTINE (BENDAMUSTINE) [Suspect]
     Indication: BREAST CANCER
     Dosage: 234 MG, INTRAVENOUS
     Route: 042
     Dates: start: 20091228, end: 20100325
  3. ACETAMINOPHEN [Concomitant]
  4. DEXAMETHASONE [Concomitant]
  5. LISINOPRIL [Concomitant]
  6. HYDROMORPHONE HCL [Concomitant]
  7. ESOMEPRAZOLE (ESOMEPRAZOLE) [Concomitant]
  8. LORAZEPAM [Concomitant]
  9. DOCUSATE (DOCUSATE) [Concomitant]
  10. DURAGESIC-100 [Concomitant]
  11. MAXALT [Concomitant]
  12. VALACYCLOVIR [Concomitant]
  13. SULFACETAMIDE/ PREDNISOLONE EAR DROPS [Concomitant]
  14. PROVIODINE (POVIDONE-IODINE) [Concomitant]
  15. IBUPROFEN [Concomitant]
  16. SODIUM CHLORIDE 0.9% [Concomitant]
  17. CLINDAMYCIN HCL [Concomitant]
  18. MULTIVITAMIN NOS [Concomitant]
  19. THIAMINE HCL [Concomitant]
  20. MAGNESIUM (MAGNESIUM) [Concomitant]

REACTIONS (21)
  - ALANINE AMINOTRANSFERASE INCREASED [None]
  - ANTIBIOTIC RESISTANT STAPHYLOCOCCUS TEST POSITIVE [None]
  - BLOOD ALBUMIN DECREASED [None]
  - BLOOD CREATININE DECREASED [None]
  - CANDIDA TEST POSITIVE [None]
  - CARBON DIOXIDE DECREASED [None]
  - CONFUSIONAL STATE [None]
  - DYSPNOEA [None]
  - EJECTION FRACTION DECREASED [None]
  - FATIGUE [None]
  - HAEMOGLOBIN DECREASED [None]
  - HYPERKALAEMIA [None]
  - HYPONATRAEMIA [None]
  - INAPPROPRIATE ANTIDIURETIC HORMONE SECRETION [None]
  - INFECTION [None]
  - KLEBSIELLA TEST POSITIVE [None]
  - LETHARGY [None]
  - LYMPHOPENIA [None]
  - NAUSEA [None]
  - PLATELET COUNT DECREASED [None]
  - TROPONIN INCREASED [None]
